FAERS Safety Report 18064880 (Version 3)
Quarter: 2022Q2

REPORT INFORMATION
  Report Type: Spontaneous
  Country: US (occurrence: US)
  Receive Date: 20200724
  Receipt Date: 20220504
  Transmission Date: 20220721
  Serious: Yes (Death, Other)
  Sender: FDA-Public Use
  Company Number: US-SAARTEMIS-SAC202007210248

PATIENT
  Age: 50 Year
  Sex: Female

DRUGS (2)
  1. ZANTAC [Suspect]
     Active Substance: RANITIDINE HYDROCHLORIDE
     Indication: Abdominal discomfort
     Dosage: UNK
     Dates: start: 198401, end: 201912
  2. ZANTAC [Suspect]
     Active Substance: RANITIDINE HYDROCHLORIDE
     Dosage: 25 MG  QD
     Dates: start: 200601, end: 201705

REACTIONS (3)
  - Uterine cancer [Unknown]
  - Colon cancer [Unknown]
  - Colorectal cancer stage IV [Fatal]

NARRATIVE: CASE EVENT DATE: 20050701
